FAERS Safety Report 9154105 (Version 1)
Quarter: 2013Q1

REPORT INFORMATION
  Report Type: Spontaneous
  Country: FR (occurrence: FR)
  Receive Date: 20130311
  Receipt Date: 20130311
  Transmission Date: 20140127
  Serious: Yes (Hospitalization)
  Sender: FDA-Public Use
  Company Number: FR-PFIZER INC-2013078502

PATIENT
  Age: 33 Year
  Sex: Female

DRUGS (11)
  1. TAZOCILLINE [Suspect]
     Dosage: UNK
     Dates: start: 20121210, end: 20130111
  2. FLAGYL [Concomitant]
     Dosage: UNK
     Dates: start: 20121214
  3. CIFLOX [Concomitant]
     Dosage: UNK
     Dates: start: 20121224
  4. TARGOCID [Concomitant]
     Dosage: UNK
     Dates: start: 20130112
  5. LEVOTHYROX [Concomitant]
  6. VALIUM [Concomitant]
  7. SPASFON [Concomitant]
  8. METEOSPASMYL [Concomitant]
  9. FORLAX [Concomitant]
  10. VANCOMYCIN [Concomitant]
     Dosage: UNK
     Dates: start: 20121204, end: 20121217
  11. GENTAMYCIN [Concomitant]
     Dosage: UNK
     Dates: start: 20121214, end: 20121218

REACTIONS (1)
  - Drug reaction with eosinophilia and systemic symptoms [Recovered/Resolved]
